FAERS Safety Report 8266740-1 (Version None)
Quarter: 2012Q2

REPORT INFORMATION
  Report Type: 
  Country: None (occurrence: None)
  Receive Date: 20120409
  Receipt Date: 20120328
  Transmission Date: 20120825
  Serious: No
  Sender: FDA-Public Use
  Company Number: US-BIOGENIDEC-2011BI008499

PATIENT
  Sex: Female

DRUGS (1)
  1. TYSABRI [Suspect]
     Indication: MULTIPLE SCLEROSIS
     Route: 042
     Dates: start: 20100623

REACTIONS (6)
  - HEADACHE [None]
  - FALL [None]
  - MUSCLE ATROPHY [None]
  - GAIT DISTURBANCE [None]
  - ATROPHY [None]
  - LOSS OF CONTROL OF LEGS [None]
